FAERS Safety Report 8881970 (Version 1)
Quarter: 2012Q4

REPORT INFORMATION
  Report Type: 
  Country: CA (occurrence: CA)
  Receive Date: 20121102
  Receipt Date: 20121102
  Transmission Date: 20130627
  Serious: Yes (Hospitalization, Other)
  Sender: FDA-Public Use
  Company Number: PHHO2004CA16480

PATIENT
  Age: 22 Year
  Sex: Male

DRUGS (11)
  1. SANDOSTATIN LAR [Suspect]
     Indication: HEPATIC NEOPLASM MALIGNANT RESECTABLE
     Dosage: UNK, UNK
     Dates: start: 20040906
  2. URSO [Concomitant]
  3. HYPOKAL [Concomitant]
  4. VITAMIN B12 [Concomitant]
     Dosage: injection every month
  5. VITAMIN D [Concomitant]
  6. VIOXX [Concomitant]
  7. FER [Concomitant]
  8. ADVIL [Concomitant]
     Indication: PYREXIA
  9. APO-CAL [Concomitant]
  10. IRON [Concomitant]
     Dosage: injection every month
  11. TESTOSTERONE [Concomitant]

REACTIONS (25)
  - Gastrointestinal haemorrhage [Recovered/Resolved]
  - Varices oesophageal [Recovered/Resolved]
  - Concomitant disease progression [Unknown]
  - Infection [Unknown]
  - Pyrexia [Unknown]
  - Chromaturia [Unknown]
  - Liver abscess [Recovering/Resolving]
  - Jaundice [Recovering/Resolving]
  - Bile duct obstruction [Recovering/Resolving]
  - Dehydration [Unknown]
  - Blood pressure decreased [Unknown]
  - Hyperhidrosis [Unknown]
  - Somnolence [Unknown]
  - Thirst [Unknown]
  - Hypotension [Unknown]
  - Anxiety [Unknown]
  - Flushing [Unknown]
  - Pain [Unknown]
  - Weight decreased [Unknown]
  - Hypersensitivity [Unknown]
  - Heart rate increased [Unknown]
  - Blood glucose decreased [Unknown]
  - Blood glucose increased [Unknown]
  - Nausea [Unknown]
  - Abdominal pain [Unknown]
